FAERS Safety Report 7972741-0 (Version None)
Quarter: 2011Q4

REPORT INFORMATION
  Report Type: 
  Country: None (occurrence: None)
  Receive Date: 20111213
  Receipt Date: 20110506
  Transmission Date: 20120403
  Serious: Yes (Hospitalization)
  Sender: FDA-Public Use
  Company Number: FR-ROCHE-754958

PATIENT
  Sex: Female
  Weight: 54 kg

DRUGS (8)
  1. XALATAN [Concomitant]
  2. PILOCARPINE [Concomitant]
  3. PAROXETINE HCL [Concomitant]
  4. SECTRAL [Concomitant]
  5. ALUMINUM HYDROXIDE AND MAGNESIUM TRISILICATE [Concomitant]
  6. ARANESP [Concomitant]
  7. AVASTIN [Suspect]
     Indication: COLORECTAL CANCER METASTATIC
     Dosage: DRUG TEMPORARILY INTERRUPTED. DATE OF LAST DOSE PRIOR TO SAE:19 JAN 2011
     Route: 042
     Dates: start: 20101208, end: 20110119
  8. IMODIUM [Concomitant]

REACTIONS (1)
  - ATRIAL TACHYCARDIA [None]
